FAERS Safety Report 8048071-8 (Version None)
Quarter: 2012Q1

REPORT INFORMATION
  Report Type: 
  Country: None (occurrence: None)
  Receive Date: 20120117
  Receipt Date: 20120111
  Transmission Date: 20120608
  Serious: No
  Sender: FDA-Public Use
  Company Number: US-BIOGENIDEC-2012BI001544

PATIENT
  Sex: Female

DRUGS (1)
  1. AVONEX [Suspect]
     Indication: MULTIPLE SCLEROSIS
     Route: 030
     Dates: start: 20010223, end: 20020101

REACTIONS (7)
  - PAIN IN EXTREMITY [None]
  - EAR INFECTION [None]
  - OPTIC NEURITIS [None]
  - BACK PAIN [None]
  - PHOBIA [None]
  - PNEUMONIA PRIMARY ATYPICAL [None]
  - MUSCLE SPASTICITY [None]
